FAERS Safety Report 5240424-6 (Version None)
Quarter: 2007Q1

REPORT INFORMATION
  Report Type: 
  Country: None (occurrence: None)
  Receive Date: 20061208
  Receipt Date: 20051107
  Transmission Date: 20070707
  Serious: Yes (Other)
  Sender: FDA-Public Use
  Company Number: 2005UW16804

PATIENT
  Age: 64 Year
  Sex: Female
  Weight: 115.66 kg

DRUGS (4)
  1. CRESTOR [Suspect]
     Indication: BLOOD CHOLESTEROL
     Dosage: 10 MG PO
     Route: 048
     Dates: start: 20050801
  2. COREG [Suspect]
     Dosage: 25 MG
     Dates: start: 20050801
  3. NIFEDIPINE [Concomitant]
  4. HYZAAR [Concomitant]

REACTIONS (1)
  - ALOPECIA [None]
